FAERS Safety Report 4599689-6 (Version None)
Quarter: 2005Q1

REPORT INFORMATION
  Report Type: 
  Country: None (occurrence: None)
  Receive Date: 20050307
  Receipt Date: 20050113
  Transmission Date: 20050727
  Serious: Yes (Life-Threatening, Hospitalization)
  Sender: FDA-Public Use
  Company Number: PHRM2005FR00546

PATIENT
  Age: 70 Year
  Sex: Male
  Weight: 75 kg

DRUGS (5)
  1. NEORAL [Suspect]
     Indication: PSORIASIS
     Dosage: 200 MG DAILY
     Route: 048
     Dates: start: 20040301, end: 20040701
  2. BRONCHODUAL [Concomitant]
     Indication: BRONCHITIS CHRONIC
  3. OMEPRAZOLE [Concomitant]
     Dosage: 20 MG, QD
  4. XATRAL [Concomitant]
     Dosage: 2.5 MG, BID
     Route: 048
  5. DOPAMINE [Concomitant]

REACTIONS (34)
  - ABDOMINAL PAIN UPPER [None]
  - ACUTE RESPIRATORY DISTRESS SYNDROME [None]
  - ANAEMIA [None]
  - ASTHENIA [None]
  - ATRIAL FIBRILLATION [None]
  - BRADYCARDIA [None]
  - C-REACTIVE PROTEIN INCREASED [None]
  - CHEST PAIN [None]
  - CHOLANGITIS [None]
  - CHOLECYSTECTOMY [None]
  - COUGH [None]
  - CYTOLYTIC HEPATITIS [None]
  - DIALYSIS [None]
  - DISSEMINATED INTRAVASCULAR COAGULATION [None]
  - GALLBLADDER DISORDER [None]
  - GOITRE [None]
  - HAEMODYNAMIC INSTABILITY [None]
  - HYPERTHYROIDISM [None]
  - HYPOTENSION [None]
  - INFLAMMATION [None]
  - INTUBATION [None]
  - LIVER DISORDER [None]
  - LUNG CREPITATION [None]
  - LYMPHADENOPATHY MEDIASTINAL [None]
  - MALAISE [None]
  - MULTI-ORGAN FAILURE [None]
  - PERICARDIAL EFFUSION [None]
  - PERICARDITIS [None]
  - PROTHROMBIN TIME RATIO DECREASED [None]
  - PYREXIA [None]
  - RENAL FAILURE [None]
  - SHOCK [None]
  - TACHYCARDIA [None]
  - VENOUS THROMBOSIS LIMB [None]
